FAERS Safety Report 14972696 (Version 1)
Quarter: 2018Q2

REPORT INFORMATION
  Report Type: Spontaneous
  Country: US (occurrence: US)
  Receive Date: 20180605
  Receipt Date: 20180605
  Transmission Date: 20180711
  Serious: No
  Sender: FDA-Public Use
  Company Number: US-PFIZER INC-2018223168

PATIENT
  Age: 73 Year
  Sex: Male
  Weight: 102.6 kg

DRUGS (1)
  1. NITROSTAT [Suspect]
     Active Substance: NITROGLYCERIN
     Indication: ANGINA PECTORIS
     Dosage: 0.4 MG, UNK (0.4 MG TABLETS BY MOUTH, EVERY FIVE MINUTES; MAX OF 3 TABLETS PER 15 MINUTES)
     Route: 048
     Dates: start: 1985

REACTIONS (3)
  - Paraesthesia oral [Unknown]
  - Drug ineffective [Unknown]
  - Headache [Unknown]
